FAERS Safety Report 10134421 (Version 1)
Quarter: 2014Q2

REPORT INFORMATION
  Report Type: Report from Study
  Country: US (occurrence: US)
  Receive Date: 20140428
  Receipt Date: 20140428
  Transmission Date: 20141212
  Serious: Yes (Other)
  Sender: FDA-Public Use
  Company Number: US-GILEAD-2014-0099680

PATIENT
  Age: 66 Year
  Sex: Male

DRUGS (3)
  1. SOFOSBUVIR [Suspect]
     Indication: CHRONIC HEPATITIS C
     Dosage: 400 MG, UNK
     Route: 065
     Dates: start: 20140211
  2. RIBAVIRIN [Concomitant]
  3. PEGINTERFERON ALFA [Concomitant]

REACTIONS (7)
  - Thrombocytopenia [Unknown]
  - Skin exfoliation [Unknown]
  - Rash pustular [Unknown]
  - Viral load decreased [Unknown]
  - Epistaxis [Unknown]
  - Haematoma [Unknown]
  - Anaemia [Unknown]
